FAERS Safety Report 8331134-7 (Version None)
Quarter: 2012Q2

REPORT INFORMATION
  Report Type: 
  Country: None (occurrence: None)
  Receive Date: 20120502
  Receipt Date: 20120427
  Transmission Date: 20120825
  Serious: Yes (Hospitalization, Other)
  Sender: FDA-Public Use
  Company Number: DE-PFIZER INC-2011186798

PATIENT
  Sex: Male

DRUGS (5)
  1. SERTRALINE HYDROCHLORIDE [Suspect]
     Dosage: 100 MG, 1X/DAY
     Route: 064
     Dates: start: 20101101, end: 20101112
  2. LEVOTHYROXINE SODIUM [Concomitant]
     Indication: AUTOIMMUNE THYROIDITIS
     Dosage: 150 UG, 1X/DAY, TO GW 12.4
     Route: 064
     Dates: start: 20100208, end: 20100507
  3. LEVOTHYROXINE SODIUM/POTASSIUM IODIDE [Concomitant]
     Indication: AUTOIMMUNE THYROIDITIS
     Dosage: 137.5/150 UG/D, FROM GW 12.5 TO 39.4
     Dates: start: 20100508, end: 20101112
  4. SERTRALINE HYDROCHLORIDE [Suspect]
     Indication: DEPRESSION
     Dosage: 150 MG, 1X/DAY
     Route: 064
     Dates: start: 20100208, end: 20101101
  5. FOLIO [Concomitant]
     Indication: PROPHYLAXIS OF NEURAL TUBE DEFECT
     Dosage: 0.4 MG, 1X/DAY, FROM GW 0 TO 12.4
     Route: 064
     Dates: start: 20100208, end: 20100512

REACTIONS (7)
  - APGAR SCORE LOW [None]
  - MATERNAL EXPOSURE TIMING UNSPECIFIED [None]
  - BRADYCARDIA NEONATAL [None]
  - NEONATAL RESPIRATORY ACIDOSIS [None]
  - TORTICOLLIS [None]
  - NEONATAL ASPIRATION [None]
  - NEONATAL RESPIRATORY DISTRESS SYNDROME [None]
